FAERS Safety Report 9493592 (Version 16)
Quarter: 2019Q2

REPORT INFORMATION
  Report Type: Spontaneous
  Country: US (occurrence: US)
  Receive Date: 20130902
  Receipt Date: 20190612
  Transmission Date: 20190711
  Serious: Yes (Other)
  Sender: FDA-Public Use
  Company Number: US-PFIZER INC-2013252351

PATIENT
  Age: 89 Year
  Sex: Male
  Weight: 88 kg

DRUGS (11)
  1. LYRICA [Suspect]
     Active Substance: PREGABALIN
     Indication: NEUROPATHY PERIPHERAL
     Dosage: UNK, 2X/DAY
     Route: 048
     Dates: start: 2001
  2. LYRICA [Suspect]
     Active Substance: PREGABALIN
     Dosage: 300 MG, 2X/DAY, [3 CAPSULE BY ORAL ROUTE 2 TIMES EVERY DAY]
     Route: 048
  3. LYRICA [Suspect]
     Active Substance: PREGABALIN
     Dosage: 4 DF, DAILY (4 PILLS IN 24 HOURS FOR 4 YEARS)
  4. LYRICA [Suspect]
     Active Substance: PREGABALIN
     Indication: NEURALGIA
     Dosage: 150 MG, 2X/DAY (150MG ONE CAPSULE AT 1900 AND ONE CAPSULE AT 0200 OR 0300)
     Route: 048
  5. LYRICA [Suspect]
     Active Substance: PREGABALIN
     Dosage: 150 MG, 2X/DAY (150 MG TWICE EVERY 24 HOURS. ONE AT 7 IN EVENING AND WHEN HE WAKES UP BETWEEN 2-4AM)
  6. LYRICA [Suspect]
     Active Substance: PREGABALIN
     Dosage: 100 MG, UNK
     Route: 048
  7. LYRICA [Suspect]
     Active Substance: PREGABALIN
     Dosage: 125 MG, 2X/DAY (100MG AND 25 MG AT 7 PM AND 100 MG AND 25 MG AT 2 AM OR 3 AM)
     Route: 048
  8. LYRICA [Suspect]
     Active Substance: PREGABALIN
     Dosage: 125 MG, 2X/DAY
     Route: 048
  9. LYRICA [Suspect]
     Active Substance: PREGABALIN
     Dosage: 25 MG, UNK
     Route: 048
  10. LYRICA [Suspect]
     Active Substance: PREGABALIN
     Dosage: 25 MG, 2X/DAY
     Route: 048
  11. LYRICA [Suspect]
     Active Substance: PREGABALIN
     Dosage: 25 MG, DAILY (TAKE 1 CAPSULE BY ORAL ROUTE EVERY DAY)
     Route: 048

REACTIONS (15)
  - Gait inability [Unknown]
  - Paraesthesia [Unknown]
  - Exostosis [Unknown]
  - Amnesia [Unknown]
  - Weight decreased [Unknown]
  - Insomnia [Unknown]
  - Thinking abnormal [Unknown]
  - Hyperventilation [Unknown]
  - Prostate cancer [Unknown]
  - Intentional product misuse [Unknown]
  - Hypoacusis [Unknown]
  - Stomach scan abnormal [Unknown]
  - Malaise [Not Recovered/Not Resolved]
  - Sedation [Unknown]
  - Pain [Unknown]

NARRATIVE: CASE EVENT DATE: 201811
